FAERS Safety Report 4556644-X (Version None)
Quarter: 2005Q1

REPORT INFORMATION
  Report Type: 
  Country: None (occurrence: None)
  Receive Date: 20050120
  Receipt Date: 20050119
  Transmission Date: 20050727
  Serious: Yes (Death)
  Sender: FDA-Public Use
  Company Number: PHHO2005ES01183

PATIENT
  Age: 68 Year
  Sex: Male

DRUGS (1)
  1. NEORAL [Suspect]
     Indication: RENAL TRANSPLANT
     Dosage: 175 MG/DAILY
     Dates: start: 19940809, end: 20040709

REACTIONS (2)
  - B-CELL LYMPHOMA [None]
  - SEPSIS [None]
